FAERS Safety Report 9981325 (Version 1)
Quarter: 2014Q1

REPORT INFORMATION
  Report Type: Spontaneous
  Country: US (occurrence: US)
  Receive Date: 20140307
  Receipt Date: 20140307
  Transmission Date: 20141002
  Serious: Yes (Death)
  Sender: FDA-Public Use
  Company Number: US-PFIZER INC-2014062741

PATIENT
  Age: 67 Year
  Sex: Female

DRUGS (4)
  1. INLYTA [Suspect]
     Indication: RENAL CANCER
     Dosage: 1 MG, UNK
     Dates: start: 20140107
  2. CALCIUM [Concomitant]
     Dosage: 600, UNK
  3. PREDNISONE [Concomitant]
     Dosage: UNK
  4. ONE-A-DAY [Concomitant]
     Dosage: UNK

REACTIONS (1)
  - Death [Fatal]
